FAERS Safety Report 4358699-4 (Version None)
Quarter: 2004Q2

REPORT INFORMATION
  Report Type: 
  Country: None (occurrence: None)
  Receive Date: 20040511
  Receipt Date: 20040501
  Transmission Date: 20050107
  Serious: Yes (Other)
  Sender: FDA-Public Use
  Company Number: 2004022219

PATIENT
  Age: 8 Year
  Sex: Female

DRUGS (8)
  1. ZYRTEC [Suspect]
     Indication: RHINITIS ALLERGIC
     Dosage: 2 TEASPOONFULS AT BEDTIME, ORAL
     Route: 048
     Dates: start: 20040309
  2. RANITIDINE HYDROCHLORIDE [Suspect]
     Indication: ILL-DEFINED DISORDER
  3. LEVOSALBUTAMOL (LEVOSALBUTAMOL) [Concomitant]
  4. FLUTICASONE PROPIONATE [Concomitant]
  5. SERETIDE MITE (FLUTICASONE PROPIONATE, SALMETEROL XINAFOATE) [Concomitant]
  6. PIRBUTEROL ACETATE (PIRBUTEROL ACETATE) [Concomitant]
  7. MONTELUKAST SODIUM (MONTELUKAST SODIUM) [Concomitant]
  8. BUDESONIDE (BUDESONIDE) [Concomitant]

REACTIONS (8)
  - ABDOMINAL PAIN [None]
  - ASTHMA [None]
  - COUGH [None]
  - CYANOSIS [None]
  - HEADACHE [None]
  - IRRITABILITY [None]
  - MEDICATION ERROR [None]
  - PHARMACEUTICAL PRODUCT COMPLAINT [None]
